FAERS Safety Report 14687692 (Version 1)
Quarter: 2018Q1

REPORT INFORMATION
  Report Type: Spontaneous
  Country: DE (occurrence: DE)
  Receive Date: 20180328
  Receipt Date: 20180328
  Transmission Date: 20180509
  Serious: Yes (Other)
  Sender: FDA-Public Use
  Company Number: DE-AUROBINDO-AUR-APL-2018-017245

PATIENT
  Age: 32 Year
  Sex: Female

DRUGS (2)
  1. IBUHEXAL                           /00109201/ [Suspect]
     Active Substance: IBUPROFEN
     Indication: ABDOMINAL PAIN UPPER
     Dosage: 1 DF, ONCE/SINGLE ; IN TOTAL
     Route: 048
     Dates: start: 20180304
  2. OMEPRAZOLE. [Suspect]
     Active Substance: OMEPRAZOLE
     Indication: ABDOMINAL PAIN UPPER
     Dosage: 1 DF, ONCE/SINGLE ; IN TOTAL
     Route: 048
     Dates: start: 20180304

REACTIONS (5)
  - Wheezing [Not Recovered/Not Resolved]
  - Lip swelling [Not Recovered/Not Resolved]
  - Anaphylactic shock [Not Recovered/Not Resolved]
  - Oropharyngeal swelling [Not Recovered/Not Resolved]
  - Urticaria [Not Recovered/Not Resolved]

NARRATIVE: CASE EVENT DATE: 20180305
